FAERS Safety Report 20516605 (Version 1)
Quarter: 2022Q1

REPORT INFORMATION
  Report Type: Spontaneous
  Country: US (occurrence: US)
  Receive Date: 20220225
  Receipt Date: 20220225
  Transmission Date: 20220423
  Serious: Yes (Other)
  Sender: FDA-Public Use
  Company Number: US-ABBVIE-22K-163-4290150-00

PATIENT
  Age: 61 Year
  Sex: Male

DRUGS (1)
  1. SKYRIZI [Suspect]
     Active Substance: RISANKIZUMAB-RZAA
     Indication: Psoriasis
     Dosage: UNKNOWN
     Route: 058
     Dates: start: 20211019

REACTIONS (5)
  - Basal cell carcinoma [Unknown]
  - Bell^s palsy [Unknown]
  - Facial paralysis [Unknown]
  - Abscess [Unknown]
  - Oedema [Unknown]

NARRATIVE: CASE EVENT DATE: 20211101
